FAERS Safety Report 17415020 (Version 2)
Quarter: 2020Q1

REPORT INFORMATION
  Report Type: Report from Study
  Country: US (occurrence: US)
  Receive Date: 20200213
  Receipt Date: 20200320
  Transmission Date: 20200409
  Serious: Yes (Hospitalization)
  Sender: FDA-Public Use
  Company Number: US-009507513-2002USA004890

PATIENT
  Age: 75 Year
  Sex: Female

DRUGS (4)
  1. JANUVIA [Suspect]
     Active Substance: SITAGLIPTIN PHOSPHATE
     Indication: TYPE 2 DIABETES MELLITUS
     Dosage: 100 MILLIGRAM, ONCE A DAY (QD)
     Route: 048
     Dates: start: 201802
  2. LIPITOR [Concomitant]
     Active Substance: ATORVASTATIN CALCIUM
     Dosage: UNK
  3. JANUVIA [Suspect]
     Active Substance: SITAGLIPTIN PHOSPHATE
     Dosage: 100 MILLIGRAM, ONCE A DAY (QD)
     Route: 048
     Dates: start: 20200211
  4. NORCO [Concomitant]
     Active Substance: ACETAMINOPHEN\HYDROCODONE BITARTRATE
     Dosage: UNK

REACTIONS (4)
  - Headache [Recovering/Resolving]
  - Product dose omission [Unknown]
  - Chest pain [Unknown]
  - Stress [Unknown]

NARRATIVE: CASE EVENT DATE: 201905
